FAERS Safety Report 24802819 (Version 2)
Quarter: 2025Q1

REPORT INFORMATION
  Report Type: Spontaneous
  Country: US (occurrence: US)
  Receive Date: 20250103
  Receipt Date: 20250224
  Transmission Date: 20250409
  Serious: No
  Sender: SANOFI AVENTIS
  Company Number: US-SA-2025SA001469

PATIENT
  Age: 44 Year
  Sex: Female

DRUGS (1)
  1. DUPILUMAB [Suspect]
     Active Substance: DUPILUMAB
     Indication: Dermatitis atopic
     Dosage: 300 MG, QOW
     Route: 058

REACTIONS (10)
  - Dermatitis contact [Unknown]
  - Blister [Unknown]
  - Skin fissures [Unknown]
  - Pruritus [Unknown]
  - Dry eye [Unknown]
  - Dermatitis atopic [Recovering/Resolving]
  - Hot flush [Recovering/Resolving]
  - Dry skin [Recovering/Resolving]
  - Ovarian operation [Unknown]
  - Product dose omission in error [Unknown]

NARRATIVE: CASE EVENT DATE: 20240101
